FAERS Safety Report 25517734 (Version 2)
Quarter: 2025Q3

REPORT INFORMATION
  Report Type: Spontaneous
  Country: JP (occurrence: JP)
  Receive Date: 20250704
  Receipt Date: 20250711
  Transmission Date: 20251021
  Serious: Yes (Death)
  Sender: UCB
  Company Number: JP-UCBSA-2025039952

PATIENT
  Age: 6 Decade
  Sex: Female
  Weight: 43 kg

DRUGS (5)
  1. VIMPAT [Suspect]
     Active Substance: LACOSAMIDE
     Indication: Epilepsy
  2. VIMPAT [Suspect]
     Active Substance: LACOSAMIDE
  3. CARBAMAZEPINE [Concomitant]
     Active Substance: CARBAMAZEPINE
     Indication: Epilepsy
  4. LAMOTRIGINE [Concomitant]
     Active Substance: LAMOTRIGINE
     Indication: Epilepsy
  5. PERAMPANEL [Concomitant]
     Active Substance: PERAMPANEL
     Indication: Epilepsy

REACTIONS (2)
  - Toxicity to various agents [Fatal]
  - Intentional overdose [Fatal]
